FAERS Safety Report 15964975 (Version 1)
Quarter: 2019Q1

REPORT INFORMATION
  Report Type: Spontaneous
  Country: US (occurrence: US)
  Receive Date: 20190124
  Receipt Date: 20190124
  Transmission Date: 20190418
  Serious: Yes (Life-Threatening, Hospitalization, Disabling)
  Sender: FDA-Public Use
  Company Number: None

PATIENT
  Age: 58 Year
  Sex: Male
  Weight: 68.04 kg

DRUGS (1)
  1. PLAVIX [Suspect]
     Active Substance: CLOPIDOGREL BISULFATE
     Indication: ANTICOAGULANT THERAPY
     Route: 048
     Dates: start: 201706, end: 201712

REACTIONS (4)
  - Product dispensing error [None]
  - Product label on wrong product [None]
  - Product appearance confusion [None]
  - Recalled product administered [None]

NARRATIVE: CASE EVENT DATE: 20171226
